FAERS Safety Report 6265969-1 (Version None)
Quarter: 2009Q3

REPORT INFORMATION
  Report Type: 
  Country: None (occurrence: None)
  Receive Date: 20090709
  Receipt Date: 20090709
  Transmission Date: 20100115
  Serious: Yes (Life-Threatening, Other)
  Sender: FDA-Public Use
  Company Number: None

PATIENT
  Age: 61 Year
  Sex: Male
  Weight: 102.0593 kg

DRUGS (5)
  1. LEXAPRO [Suspect]
     Indication: DEPRESSION
     Dosage: 10MG ONE PER DAY PO
     Route: 048
     Dates: start: 20090204, end: 20090217
  2. HYDROCHLOROTHIAZIDE [Concomitant]
  3. ANTENOLOL [Concomitant]
  4. EFFEXOR [Concomitant]
  5. AVINZA [Concomitant]

REACTIONS (7)
  - DELIRIUM [None]
  - HYPERTENSION [None]
  - MENTAL DISORDER [None]
  - NERVOUS SYSTEM DISORDER [None]
  - PALPITATIONS [None]
  - THINKING ABNORMAL [None]
  - UNEVALUABLE EVENT [None]
